FAERS Safety Report 18867515 (Version 3)
Quarter: 2021Q4

REPORT INFORMATION
  Report Type: Spontaneous
  Country: US (occurrence: US)
  Receive Date: 20210209
  Receipt Date: 20211210
  Transmission Date: 20220303
  Serious: No
  Sender: FDA-Public Use
  Company Number: US-PFIZER INC-2021116380

PATIENT
  Age: 67 Year
  Sex: Female

DRUGS (1)
  1. LYRICA [Suspect]
     Active Substance: PREGABALIN
     Indication: Neuropathy peripheral
     Dosage: UNK

REACTIONS (5)
  - Nasal congestion [Unknown]
  - Visual impairment [Unknown]
  - Limb injury [Unknown]
  - Gait disturbance [Unknown]
  - Intentional product use issue [Unknown]
